FAERS Safety Report 7620345 (Version 3)
Quarter: 2013Q4

REPORT INFORMATION
  Report Type: Spontaneous
  Country: CA (occurrence: CA)
  Receive Date: 20101007
  Receipt Date: 20131010
  Transmission Date: 20140711
  Serious: Yes (Other)
  Sender: FDA-Public Use
  Company Number: CA-ROCHE-731040

PATIENT
  Age: 29 Year
  Sex: Male

DRUGS (3)
  1. NAPROXEN [Suspect]
     Indication: HEADACHE
     Dosage: (ENTERICCOATED) CO-INDICATION:INFLAMMATION OF FINGER
     Route: 048
  2. NAPROXEN [Suspect]
     Indication: INFLAMMATION
  3. PROSCAR [Suspect]
     Indication: ALOPECIA
     Route: 065

REACTIONS (1)
  - Uveitis [Not Recovered/Not Resolved]
